FAERS Safety Report 10464559 (Version 3)
Quarter: 2015Q3

REPORT INFORMATION
  Report Type: Spontaneous
  Country: US (occurrence: US)
  Receive Date: 20140919
  Receipt Date: 20150806
  Transmission Date: 20151125
  Serious: Yes (Hospitalization, Other)
  Sender: FDA-Public Use
  Company Number: US-BAXTER-2014BAX053486

PATIENT
  Age: 63 Year
  Sex: Male

DRUGS (2)
  1. DIANEAL PD-2 WITH DEXTROSE [Suspect]
     Active Substance: CALCIUM CHLORIDE\DEXTROSE MONOHYDRATE\MAGNESIUM CHLORIDE\SODIUM CHLORIDE\SODIUM LACTATE
     Indication: CHRONIC KIDNEY DISEASE
     Route: 033
     Dates: start: 20140410
  2. DIANEAL PD-2 WITH DEXTROSE [Suspect]
     Active Substance: CALCIUM CHLORIDE\DEXTROSE MONOHYDRATE\MAGNESIUM CHLORIDE\SODIUM CHLORIDE\SODIUM LACTATE
     Indication: PERITONEAL DIALYSIS
     Route: 033

REACTIONS (9)
  - Product label issue [Unknown]
  - Product tampering [Unknown]
  - Chest pain [Not Recovered/Not Resolved]
  - Procedural pain [Recovering/Resolving]
  - Paraesthesia [Recovering/Resolving]
  - Pneumonia [Recovered/Resolved]
  - Feeling hot [Recovering/Resolving]
  - Hypoaesthesia [Recovering/Resolving]
  - Poor quality drug administered [Unknown]

NARRATIVE: CASE EVENT DATE: 20140822
